FAERS Safety Report 8520597-X (Version None)
Quarter: 2012Q3

REPORT INFORMATION
  Report Type: 
  Country: None (occurrence: None)
  Receive Date: 20120713
  Receipt Date: 20120713
  Transmission Date: 20120928
  Serious: No
  Sender: FDA-Public Use
  Company Number: None

PATIENT
  Sex: Male

DRUGS (1)
  1. LAMICTAL [Suspect]
     Indication: BIPOLAR I DISORDER
     Dosage: 25 MG *2 BID PO
     Route: 048
     Dates: start: 20120601, end: 20120701

REACTIONS (3)
  - DEPRESSION [None]
  - DISEASE RECURRENCE [None]
  - PRODUCT SUBSTITUTION ISSUE [None]
